FAERS Safety Report 4526033-2 (Version None)
Quarter: 2004Q4

REPORT INFORMATION
  Report Type: 
  Country: None (occurrence: None)
  Receive Date: 20041210
  Receipt Date: 20041125
  Transmission Date: 20050328
  Serious: Yes (Hospitalization)
  Sender: FDA-Public Use
  Company Number: 200410652

PATIENT
  Age: 52 Year
  Sex: Male

DRUGS (1)
  1. BOTOX [Suspect]
     Indication: SKIN WRINKLING

REACTIONS (8)
  - ASTHENIA [None]
  - BOTULISM [None]
  - DIPLOPIA [None]
  - DRY MOUTH [None]
  - ELECTROMYOGRAM ABNORMAL [None]
  - PARALYSIS FLACCID [None]
  - RESPIRATORY FAILURE [None]
  - VISION BLURRED [None]
